FAERS Safety Report 4556376-8 (Version None)
Quarter: 2005Q1

REPORT INFORMATION
  Report Type: 
  Country: None (occurrence: None)
  Receive Date: 20050103
  Receipt Date: 20041027
  Transmission Date: 20050727
  Serious: Yes (Other)
  Sender: FDA-Public Use
  Company Number: 2004UW17773

PATIENT
  Age: 54 Year
  Sex: Female
  Weight: 92.0802 kg

DRUGS (13)
  1. CRESTOR [Suspect]
     Indication: DYSLIPIDAEMIA
     Dosage: 10 MG QD PO
     Route: 048
     Dates: start: 20040501, end: 20040617
  2. CRESTOR [Suspect]
     Indication: DYSLIPIDAEMIA
     Dosage: 5 MG PO
     Route: 048
  3. PRAVACHOL [Concomitant]
  4. ZETIA [Concomitant]
  5. MONOPRIL [Concomitant]
  6. PREMARIN [Concomitant]
  7. HYDROCHLOROTHIAZIDE [Concomitant]
  8. MOBIC [Concomitant]
  9. ASPIRIN [Concomitant]
  10. ZOLOFT [Concomitant]
  11. LORTAB [Concomitant]
  12. MULTI-VITAMINS [Concomitant]
  13. ATENOLOL [Concomitant]

REACTIONS (1)
  - LUPUS-LIKE SYNDROME [None]
